FAERS Safety Report 10156652 (Version 1)
Quarter: 2014Q2

REPORT INFORMATION
  Report Type: Spontaneous
  Country: US (occurrence: US)
  Receive Date: 20140507
  Receipt Date: 20140507
  Transmission Date: 20141212
  Serious: Yes (Other)
  Sender: FDA-Public Use
  Company Number: US-BAYER-2014-063601

PATIENT
  Age: 72 Year
  Sex: Male
  Weight: 65.31 kg

DRUGS (3)
  1. ALEVE CAPLET [Suspect]
     Indication: ARTHRITIS
     Dosage: 2 DF, BID
     Route: 048
     Dates: start: 2010
  2. BAYER ASPIRIN REGIMEN ADULT LOW STRENGTH [Concomitant]
  3. SIMVASTATIN [Concomitant]

REACTIONS (7)
  - Haemorrhagic diathesis [Recovered/Resolved]
  - Labelled drug-drug interaction medication error [None]
  - Musculoskeletal stiffness [Recovered/Resolved]
  - Drug ineffective [None]
  - Extra dose administered [None]
  - Intentional overdose [None]
  - Incorrect drug administration duration [None]
